FAERS Safety Report 9891879 (Version 2)
Quarter: 2014Q1

REPORT INFORMATION
  Report Type: Spontaneous
  Country: US (occurrence: None)
  Receive Date: 20140210
  Receipt Date: 20140218
  Transmission Date: 20141002
  Serious: Yes (Disabling)
  Sender: FDA-Public Use
  Company Number: PL-AE14-000223

PATIENT
  Sex: Male

DRUGS (1)
  1. CLEAR EYES MAXIMUM REDNESS RELIEF [Suspect]
     Indication: OCULAR HYPERAEMIA
     Route: 047
     Dates: start: 2013, end: 2013

REACTIONS (4)
  - Instillation site irritation [None]
  - Vision blurred [None]
  - Foreign body sensation in eyes [None]
  - Corrective lens user [None]
